FAERS Safety Report 17701394 (Version 1)
Quarter: 2020Q2

REPORT INFORMATION
  Report Type: Report from Study
  Country: US (occurrence: US)
  Receive Date: 20200424
  Receipt Date: 20200424
  Transmission Date: 20200714
  Serious: Yes (Hospitalization)
  Sender: FDA-Public Use
  Company Number: US-TAIHO ONCOLOGY  INC-EU-2019-04151

PATIENT
  Sex: Male

DRUGS (11)
  1. CEFPODOXIME [Concomitant]
     Active Substance: CEFPODOXIME
  2. DICYCLOMINE [Concomitant]
     Active Substance: DICYCLOMINE HYDROCHLORIDE
  3. SODIUM BICARBONATE. [Concomitant]
     Active Substance: SODIUM BICARBONATE
  4. TAMSULOSIN [Concomitant]
     Active Substance: TAMSULOSIN
     Dosage: NI
  5. LONSURF [Suspect]
     Active Substance: TIPIRACIL HYDROCHLORIDE\TRIFLURIDINE
     Indication: RECTAL CANCER
     Dosage: CYCLE NUMBER UNKNOWN
     Route: 048
     Dates: start: 20190611
  6. ONDANSETRON [Concomitant]
     Active Substance: ONDANSETRON
     Dosage: NI
  7. DIPHEN/ATROP [Concomitant]
     Active Substance: ATROPINE SULFATE\DIPHENOXYLATE
  8. LONSURF [Suspect]
     Active Substance: TIPIRACIL HYDROCHLORIDE\TRIFLURIDINE
     Indication: COLON CANCER
     Dosage: CURRENT CYCLE UNKNOWN.
     Route: 048
     Dates: start: 20190611
  9. GABAPENTIN. [Concomitant]
     Active Substance: GABAPENTIN
     Dosage: NI
  10. OXYCODONE [Concomitant]
     Active Substance: OXYCODONE
     Dosage: NI
  11. LONSURF [Suspect]
     Active Substance: TIPIRACIL HYDROCHLORIDE\TRIFLURIDINE
     Indication: COLON CANCER

REACTIONS (6)
  - Dysgeusia [Not Recovered/Not Resolved]
  - Dehydration [Not Recovered/Not Resolved]
  - Neuropathy peripheral [Not Recovered/Not Resolved]
  - Dry skin [Recovering/Resolving]
  - Diarrhoea [Not Recovered/Not Resolved]
  - Nausea [Not Recovered/Not Resolved]

NARRATIVE: CASE EVENT DATE: 2019
